FAERS Safety Report 6273903-3 (Version None)
Quarter: 2009Q3

REPORT INFORMATION
  Report Type: 
  Country: None (occurrence: None)
  Receive Date: 20090716
  Receipt Date: 20090702
  Transmission Date: 20100115
  Serious: Yes (Life-Threatening)
  Sender: FDA-Public Use
  Company Number: 1000007351

PATIENT
  Age: 52 Year
  Sex: Female

DRUGS (3)
  1. CITALOPRAM HYDROBROMIDE [Suspect]
     Indication: ANXIETY DISORDER
     Dosage: 20 MG (20 MG, 1 IN 1 D), ORAL
     Route: 048
     Dates: start: 20090401, end: 20090601
  2. BELOC-ZOK (47.5 MILLIGRAM) [Suspect]
     Indication: HYPERTENSION
     Dosage: 80 MG (80 MG, 1 IN 1 D), ORAL
     Route: 048
     Dates: start: 20090401, end: 20090601
  3. NEXIUM [Concomitant]

REACTIONS (3)
  - DRUG INTERACTION [None]
  - FEAR OF DEATH [None]
  - TACHYCARDIA [None]
